FAERS Safety Report 5799302-6 (Version None)
Quarter: 2008Q3

REPORT INFORMATION
  Report Type: 
  Country: None (occurrence: None)
  Receive Date: 20080701
  Receipt Date: 20080616
  Transmission Date: 20090109
  Serious: Yes (Hospitalization)
  Sender: FDA-Public Use
  Company Number: 2008AL007102

PATIENT
  Age: 67 Year
  Sex: Male

DRUGS (4)
  1. DIGOXIN [Suspect]
     Indication: MYOCARDIAL INFARCTION
     Dosage: 0.125MG DAILY PO
     Route: 048
     Dates: start: 19970101, end: 20071009
  2. COREG [Concomitant]
  3. LISINOPRIL [Concomitant]
  4. TRIARN- /HC-Z [Concomitant]

REACTIONS (1)
  - BRADYCARDIA [None]
